FAERS Safety Report 7968511-X (Version None)
Quarter: 2011Q4

REPORT INFORMATION
  Report Type: 
  Country: None (occurrence: None)
  Receive Date: 20111209
  Receipt Date: 20111202
  Transmission Date: 20120403
  Serious: Yes (Hospitalization, Other)
  Sender: FDA-Public Use
  Company Number: JP-BAYER-2011-109488

PATIENT
  Age: 37 Year
  Sex: Female
  Weight: 70 kg

DRUGS (6)
  1. DEPAS [Concomitant]
     Indication: INSOMNIA
     Dosage: DAILY DOSE .5 MG
     Route: 048
     Dates: start: 20110516, end: 20110531
  2. PREDNISOLONE [Concomitant]
     Dosage: DAILY DOSE 20 MG
     Route: 065
     Dates: start: 20110424, end: 20110525
  3. AVONEX [Concomitant]
     Dosage: UNK
     Route: 030
     Dates: start: 20110817
  4. CABAGIN-U [Concomitant]
     Indication: GASTRITIS
     Dosage: DAILY DOSE 3 DF
     Route: 048
     Dates: start: 20110412, end: 20110601
  5. BETASERON [Suspect]
     Indication: MULTIPLE SCLEROSIS
     Dosage: 8 MIU, QOD
     Route: 058
     Dates: start: 20080916, end: 20110530
  6. SOLETON [Concomitant]
     Indication: HEADACHE
     Dosage: DAILY DOSE 1 DF
     Route: 048
     Dates: start: 20081111, end: 20110530

REACTIONS (2)
  - PYREXIA [None]
  - LIVER DISORDER [None]
